FAERS Safety Report 7077126-X (Version None)
Quarter: 2010Q4

REPORT INFORMATION
  Report Type: 
  Country: None (occurrence: None)
  Receive Date: 20101101
  Receipt Date: 20101027
  Transmission Date: 20110411
  Serious: Yes (Hospitalization)
  Sender: FDA-Public Use
  Company Number: A0796727A

PATIENT
  Age: 53 Year
  Sex: Male
  Weight: 110.5 kg

DRUGS (3)
  1. AVANDIA [Suspect]
  2. AVANDAMET [Suspect]
  3. AVANDIA [Suspect]

REACTIONS (3)
  - CEREBROVASCULAR ACCIDENT [None]
  - CORONARY ARTERY BYPASS [None]
  - MOTOR DYSFUNCTION [None]
